FAERS Safety Report 11030418 (Version 3)
Quarter: 2015Q2

REPORT INFORMATION
  Report Type: Spontaneous
  Country: US (occurrence: None)
  Receive Date: 20150413
  Receipt Date: 20150518
  Transmission Date: 20150821
  Serious: Yes (Other)
  Sender: FDA-Public Use
  Company Number: US-H14001-15-00525

PATIENT
  Age: 57 Year
  Sex: Female
  Weight: 94.5 kg

DRUGS (23)
  1. RITALIN (METHYLPHENIDATE HYDROCHLORIDE) [Concomitant]
     Active Substance: METHYLPHENIDATE HYDROCHLORIDE
  2. ZOVIRAX [Concomitant]
     Active Substance: ACYCLOVIR
  3. CYMBALTA [Concomitant]
     Active Substance: DULOXETINE HYDROCHLORIDE
  4. ZOFRAN [Concomitant]
     Active Substance: ONDANSETRON HYDROCHLORIDE
  5. ALBUTEROL HFA (SALBUTAMOL) [Concomitant]
  6. COREG [Concomitant]
     Active Substance: CARVEDILOL
  7. SYNTHROID [Concomitant]
     Active Substance: LEVOTHYROXINE SODIUM
  8. GLYCOLAX/MIRALAX (MACROGOL) [Concomitant]
  9. ADRIAMYCIN [Suspect]
     Active Substance: DOXORUBICIN HYDROCHLORIDE
     Indication: PLASMA CELL MYELOMA
     Dosage: 0 MG/M2, DAY 1-4, INTRAVENOS (NOT OTHERWISE SPECIFIED)
     Route: 042
     Dates: start: 20140614, end: 2014
  10. VITAMIN D (COLECALCIFEROL) [Concomitant]
  11. VITAMIN B12 [Concomitant]
     Active Substance: CYANOCOBALAMIN
  12. DECADRON [Concomitant]
     Active Substance: DEXAMETHASONE
  13. FLONASE [Concomitant]
     Active Substance: FLUTICASONE PROPIONATE
  14. LEVAQUIN [Concomitant]
     Active Substance: LEVOFLOXACIN
  15. VELCADE [Suspect]
     Active Substance: BORTEZOMIB
     Indication: PLASMA CELL MYELOMA
     Dosage: (1.3 MG/M2, 2 IN 1 WK), SUBCUTANEOUS
     Route: 058
     Dates: start: 20140317, end: 20140321
  16. VIACTIV (VIACTIV/02341401/} (TABLETS) (COLECALCIFEROL, PHYTOMENADIONE CALCIUM CARBONATE) [Concomitant]
  17. NORCO (VICODIN) (TABLETS) (PARACETAMOL, HYDROCODONE BITARTRATE) [Concomitant]
  18. KETALAR (KETAMINE HYDROCHLORIDE) [Concomitant]
  19. ATIVAN [Concomitant]
     Active Substance: LORAZEPAM
  20. DOLOPHINE (METHADONE HYDROCHLORIDE) [Concomitant]
  21. COMPAZINE [Concomitant]
     Active Substance: PROCHLORPERAZINE MALEATE
  22. SENOKOT S (COLOXYL WITH SENNA) (TABLETS) (SENNOSIDE A+B, DOCUSATE SODIUM) [Concomitant]
  23. ZYPREXA [Concomitant]
     Active Substance: OLANZAPINE

REACTIONS (1)
  - Decubitus ulcer [None]

NARRATIVE: CASE EVENT DATE: 20140917
